FAERS Safety Report 23414533 (Version 1)
Quarter: 2024Q1

REPORT INFORMATION
  Report Type: Other
  Country: US (occurrence: None)
  Receive Date: 20240118
  Receipt Date: 20240118
  Transmission Date: 20240410
  Serious: Yes (Death)
  Sender: FDA-Public Use
  Company Number: US-ROCHE-3492464

PATIENT
  Age: 33 Year
  Sex: Male
  Weight: 68.9 kg

DRUGS (10)
  1. VENCLEXTA [Suspect]
     Active Substance: VENETOCLAX
     Indication: Acute lymphocytic leukaemia recurrent
     Dosage: TAKE 1 TAB ONCE A DAY FOR 14 DAYS THEN DON^T TAKE THEM FOR 2 WEEKS
     Route: 048
  2. VENCLEXTA [Suspect]
     Active Substance: VENETOCLAX
     Indication: Acute leukaemia
  3. VENCLEXTA [Suspect]
     Active Substance: VENETOCLAX
     Indication: Chronic lymphocytic leukaemia
  4. VENCLEXTA [Suspect]
     Active Substance: VENETOCLAX
     Indication: Neoplasm malignant
  5. RITUXAN [Suspect]
     Active Substance: RITUXIMAB
     Indication: Acute lymphocytic leukaemia recurrent
     Dosage: DATE OF TREATMENT: 29/NOV/2023, 05/DEC/2023, 12/DEC/2023
     Route: 041
  6. ACYCLOVIR [Concomitant]
     Active Substance: ACYCLOVIR
  7. ENTECAVIR [Concomitant]
     Active Substance: ENTECAVIR
  8. PANTOPRAZOLE [Concomitant]
     Active Substance: PANTOPRAZOLE
  9. ONDANSETRON [Concomitant]
     Active Substance: ONDANSETRON
  10. ALLOPURINOL [Concomitant]
     Active Substance: ALLOPURINOL

REACTIONS (2)
  - Death [Fatal]
  - Off label use [Unknown]
